FAERS Safety Report 7381388-9 (Version None)
Quarter: 2011Q1

REPORT INFORMATION
  Report Type: 
  Country: None (occurrence: None)
  Receive Date: 20110324
  Receipt Date: 20110324
  Transmission Date: 20110831
  Serious: Yes (Disabling)
  Sender: FDA-Public Use
  Company Number: None

PATIENT
  Sex: Female
  Weight: 62.5964 kg

DRUGS (1)
  1. TAMIFLU [Suspect]
     Indication: INFLUENZA
     Dosage: TWICE DAILY 2 DAILY
     Dates: start: 20110125, end: 20110126

REACTIONS (9)
  - BURNING SENSATION [None]
  - FATIGUE [None]
  - AMNESIA [None]
  - BLINDNESS UNILATERAL [None]
  - BLISTER [None]
  - VISION BLURRED [None]
  - EYELID DISORDER [None]
  - OROPHARYNGEAL BLISTERING [None]
  - LACRIMATION INCREASED [None]
